FAERS Safety Report 5408747-5 (Version None)
Quarter: 2007Q3

REPORT INFORMATION
  Report Type: 
  Country: None (occurrence: None)
  Receive Date: 20070808
  Receipt Date: 20070802
  Transmission Date: 20080115
  Serious: Yes (Hospitalization)
  Sender: FDA-Public Use
  Company Number: B0482061A

PATIENT
  Age: 64 Year
  Sex: Male

DRUGS (7)
  1. AUGMENTIN '125' [Suspect]
     Indication: GROIN INFECTION
     Dosage: 6UNIT PER DAY
     Route: 048
     Dates: start: 20070505, end: 20070526
  2. PLAVIX [Concomitant]
     Dosage: 75MG PER DAY
     Route: 048
  3. AMLODIPINE [Concomitant]
     Dosage: 5MG PER DAY
  4. OMEPRAZOLE [Concomitant]
     Dosage: 1UNIT PER DAY
  5. NISIS [Concomitant]
     Dosage: 160MG PER DAY
  6. SECTRAL [Concomitant]
     Dosage: 400MG PER DAY
  7. TRIATEC [Concomitant]
     Dosage: 5MG PER DAY

REACTIONS (6)
  - ASTHENIA [None]
  - GENERAL PHYSICAL HEALTH DETERIORATION [None]
  - HEPATITIS CHOLESTATIC [None]
  - JAUNDICE [None]
  - PRURITUS [None]
  - WEIGHT DECREASED [None]
